FAERS Safety Report 8605259-2 (Version None)
Quarter: 2012Q3

REPORT INFORMATION
  Report Type: 
  Country: None (occurrence: None)
  Receive Date: 20120820
  Receipt Date: 20120813
  Transmission Date: 20120928
  Serious: No
  Sender: FDA-Public Use
  Company Number: US-B.I. PHARMACEUTICALS,INC./RIDGEFIELD-2009-BP-14195BP

PATIENT
  Sex: Male

DRUGS (4)
  1. HYDROCHLOROTHIAZIDE [Concomitant]
     Indication: OEDEMA PERIPHERAL
     Route: 048
     Dates: start: 20120701
  2. COMBIVENT [Suspect]
     Indication: EMPHYSEMA
     Route: 055
     Dates: start: 20060101
  3. MULTI-VITAMINS [Concomitant]
     Indication: SUPPLEMENTATION THERAPY
     Route: 048
     Dates: start: 19820101
  4. ENALAPRIL MALEATE [Concomitant]
     Indication: HYPERTENSION
     Dosage: 25 MG
     Route: 048
     Dates: start: 20120701

REACTIONS (10)
  - DYSPHAGIA [None]
  - RHINORRHOEA [None]
  - HYPERSENSITIVITY [None]
  - SWOLLEN TONGUE [None]
  - PHARYNGEAL OEDEMA [None]
  - INCREASED UPPER AIRWAY SECRETION [None]
  - JOINT SWELLING [None]
  - DYSPNOEA [None]
  - DRUG INEFFECTIVE [None]
  - HYPERTENSION [None]
